FAERS Safety Report 7521621-3 (Version None)
Quarter: 2011Q2

REPORT INFORMATION
  Report Type: 
  Country: None (occurrence: None)
  Receive Date: 20110603
  Receipt Date: 20110531
  Transmission Date: 20111010
  Serious: Yes (Death)
  Sender: FDA-Public Use
  Company Number: US-AMGEN-USASP2011028410

PATIENT
  Sex: Female

DRUGS (3)
  1. IMMUNOGLOBULINS [Concomitant]
     Dosage: UNK
     Dates: start: 20100422, end: 20100423
  2. CORTICOSTEROIDS [Concomitant]
     Dosage: UNK
     Dates: start: 20100412, end: 20100503
  3. NPLATE [Suspect]
     Indication: IDIOPATHIC THROMBOCYTOPENIC PURPURA
     Dosage: 3 A?G/KG, UNK
     Dates: start: 20100506, end: 20101123

REACTIONS (1)
  - DEATH [None]
